FAERS Safety Report 9224557 (Version 1)
Quarter: 2013Q1

REPORT INFORMATION
  Report Type: Spontaneous
  Country: US (occurrence: None)
  Receive Date: 20120914
  Receipt Date: 20120914
  Transmission Date: 20140127
  Serious: Yes (Hospitalization)
  Sender: FDA-Public Use
  Company Number: JPI-P-019776

PATIENT
  Age: 70 Year
  Sex: Female

DRUGS (9)
  1. XYREM(500 MILLIGRAM/MILLILITERS, SOLUTION)(SODIUM OXYBATE) [Suspect]
     Indication: FIBROMYALGIA
     Dosage: (2 GM, 2 IN 1 D)
     Route: 048
     Dates: start: 20051118
  2. BUPROPION HYDROCHLORIDE [Suspect]
     Indication: DEPRESSION
     Route: 048
  3. TOLTERODINE TARTRATE (UNKNOWN) [Concomitant]
  4. CYCLOBENZAPRINE HYDROCHLORIDE (UNKNOWN) [Concomitant]
  5. VITAMIN C(UNKNOWN) [Concomitant]
  6. VITAMIN D/CALCIUM (UNKNOWN) [Concomitant]
  7. VITAMIN B12(UNKNOWN) [Concomitant]
  8. THYROID (UNKNOWN) [Concomitant]
  9. ESOMEPRAZOLE (UNKNOWN) [Concomitant]

REACTIONS (1)
  - Hepatic enzyme increased [None]
